FAERS Safety Report 11274099 (Version 2)
Quarter: 2015Q4

REPORT INFORMATION
  Report Type: Spontaneous
  Country: JP (occurrence: JP)
  Receive Date: 20150715
  Receipt Date: 20151231
  Transmission Date: 20160304
  Serious: Yes (Other)
  Sender: FDA-Public Use
  Company Number: JP-GLAXOSMITHKLINE-JP2015GSK101759

PATIENT
  Sex: Female

DRUGS (2)
  1. OMEGA-3-ACID ETHYL ESTERS. [Suspect]
     Active Substance: OMEGA-3-ACID ETHYL ESTERS
     Indication: DYSLIPIDAEMIA
     Dosage: 2 G, UNK
     Route: 048
  2. LIVALO [Concomitant]
     Active Substance: PITAVASTATIN CALCIUM

REACTIONS (1)
  - Interstitial lung disease [Unknown]
